FAERS Safety Report 19703253 (Version 2)
Quarter: 2021Q3

REPORT INFORMATION
  Report Type: Report from Study
  Country: None (occurrence: US)
  Receive Date: 20210816
  Receipt Date: 20210907
  Transmission Date: 20211014
  Serious: Yes (Hospitalization)
  Sender: FDA-Public Use
  Company Number: US-ABBVIE-21K-163-4028738-00

PATIENT
  Sex: Male

DRUGS (1)
  1. IMBRUVICA [Suspect]
     Active Substance: IBRUTINIB
     Indication: CHRONIC LYMPHOCYTIC LEUKAEMIA
     Route: 048
     Dates: start: 20210505

REACTIONS (5)
  - Pyrexia [Unknown]
  - Chills [Unknown]
  - Seasonal allergy [Unknown]
  - Cholelithiasis [Unknown]
  - Haemorrhage [Unknown]

NARRATIVE: CASE EVENT DATE: 2021
